FAERS Safety Report 6824929-X (Version None)
Quarter: 2010Q3

REPORT INFORMATION
  Report Type: 
  Country: None (occurrence: None)
  Receive Date: 20100708
  Receipt Date: 20061230
  Transmission Date: 20110219
  Serious: No
  Sender: FDA-Public Use
  Company Number: US-PFIZER INC-2006140493

PATIENT
  Sex: Female
  Weight: 63.5 kg

DRUGS (8)
  1. CHANTIX [Suspect]
     Indication: EX-TOBACCO USER
     Route: 048
     Dates: start: 20061106
  2. NEXIUM [Concomitant]
  3. OGEN [Concomitant]
  4. SYNTHROID [Concomitant]
  5. ATENOLOL [Concomitant]
  6. CICLOSPORIN [Concomitant]
  7. DARIFENACIN [Concomitant]
  8. DITROPAN XL [Concomitant]

REACTIONS (5)
  - ARTHRALGIA [None]
  - NAUSEA [None]
  - SOMNOLENCE [None]
  - VERTIGO [None]
  - WEIGHT INCREASED [None]
